FAERS Safety Report 7847167-0 (Version None)
Quarter: 2011Q4

REPORT INFORMATION
  Report Type: 
  Country: None (occurrence: None)
  Receive Date: 20111025
  Receipt Date: 20111013
  Transmission Date: 20120403
  Serious: Yes (Other)
  Sender: FDA-Public Use
  Company Number: US-RB-008686-10

PATIENT
  Sex: Female

DRUGS (5)
  1. SIMVASTATIN [Concomitant]
     Indication: HYPERLIPIDAEMIA
  2. CARVEDILOL [Concomitant]
     Indication: HYPERTENSION
  3. CAPTOPRIL [Concomitant]
     Indication: HYPERTENSION
  4. SUBOXONE [Suspect]
     Indication: DRUG DEPENDENCE
     Route: 060
  5. ADDERALL 5 [Concomitant]
     Indication: ATTENTION DEFICIT/HYPERACTIVITY DISORDER
     Dosage: BEGAN PRIOR TO 3/13/2010
     Route: 065

REACTIONS (4)
  - CARDIAC FAILURE CONGESTIVE [None]
  - MATERNAL EXPOSURE DURING PREGNANCY [None]
  - CARDIOMYOPATHY [None]
  - NAUSEA [None]
